FAERS Safety Report 8833632 (Version 3)
Quarter: 2014Q3

REPORT INFORMATION
  Report Type: Report from Study
  Country: US (occurrence: US)
  Receive Date: 20121010
  Receipt Date: 20140905
  Transmission Date: 20150326
  Serious: Yes (Other)
  Sender: FDA-Public Use
  Company Number: US-ROCHE-1131235

PATIENT
  Sex: Female

DRUGS (8)
  1. VINCRISTINE [Concomitant]
     Active Substance: VINCRISTINE
  2. IMURAN [Concomitant]
     Active Substance: AZATHIOPRINE
     Route: 065
  3. IMURAN [Concomitant]
     Active Substance: AZATHIOPRINE
     Route: 065
  4. PREDNISOLONE. [Concomitant]
     Active Substance: PREDNISOLONE
     Route: 065
  5. ZYRTEC [Concomitant]
     Active Substance: CETIRIZINE HYDROCHLORIDE
  6. RITUXAN [Suspect]
     Active Substance: RITUXIMAB
     Indication: THROMBOCYTOPENIA
     Dosage: DOSAGE: 375MG/M2
     Route: 042
  7. RITUXAN [Suspect]
     Active Substance: RITUXIMAB
     Indication: IMMUNE THROMBOCYTOPENIC PURPURA
  8. PRILOSEC [Concomitant]
     Active Substance: OMEPRAZOLE MAGNESIUM

REACTIONS (19)
  - Ear infection [Unknown]
  - Limb discomfort [Unknown]
  - Oropharyngeal pain [Unknown]
  - Retinal haemorrhage [Unknown]
  - Age-related macular degeneration [Unknown]
  - Rash [Unknown]
  - Musculoskeletal pain [Unknown]
  - Abdominal discomfort [Unknown]
  - Dysgeusia [Unknown]
  - Off label use [Unknown]
  - Urticaria [Unknown]
  - Nausea [Unknown]
  - Contusion [Unknown]
  - Swollen tongue [Unknown]
  - Thrombocytopenia [Unknown]
  - Oedema [Unknown]
  - Hypertension [Unknown]
  - Respiratory tract congestion [Unknown]
  - Back pain [Unknown]
